FAERS Safety Report 11145547 (Version 1)
Quarter: 2015Q2

REPORT INFORMATION
  Report Type: Spontaneous
  Country: US (occurrence: US)
  Receive Date: 20150526
  Receipt Date: 20150526
  Transmission Date: 20150821
  Serious: No
  Sender: FDA-Public Use
  Company Number: US-MALLINCKRODT-T201502248

PATIENT
  Sex: Male

DRUGS (1)
  1. H.P. ACTHAR [Suspect]
     Active Substance: CORTICOTROPIN
     Indication: GLOMERULONEPHRITIS MEMBRANOUS
     Dosage: 80 UNITS / TWICE PER WEEK
     Route: 058
     Dates: start: 20141006

REACTIONS (3)
  - Heart rate increased [Unknown]
  - Wound [Recovering/Resolving]
  - Pharyngitis streptococcal [Recovered/Resolved]
